FAERS Safety Report 24540633 (Version 1)
Quarter: 2024Q4

REPORT INFORMATION
  Report Type: Other
  Country: US (occurrence: US)
  Receive Date: 20241023
  Receipt Date: 20241023
  Transmission Date: 20250115
  Serious: Yes (Hospitalization)
  Sender: B BRAUN
  Company Number: US-B.Braun Medical Inc.-2163651

PATIENT
  Age: 55 Year
  Sex: Male

DRUGS (6)
  1. CEFTRIAXONE SODIUM [Suspect]
     Active Substance: CEFTRIAXONE SODIUM
     Indication: Evidence based treatment
  2. CEFTRIAXONE SODIUM [Suspect]
     Active Substance: CEFTRIAXONE SODIUM
     Indication: Pneumonia
  3. MEROPENEM [Suspect]
     Active Substance: MEROPENEM
  4. HEPARIN [Concomitant]
     Active Substance: HEPARIN SODIUM
  5. VANCOMYCIN [Suspect]
     Active Substance: VANCOMYCIN
  6. AZITHROMYCIN [Suspect]
     Active Substance: AZITHROMYCIN

REACTIONS (1)
  - Drug ineffective [Unknown]
